FAERS Safety Report 8943621 (Version 1)
Quarter: 2012Q4

REPORT INFORMATION
  Report Type: 
  Country: AU (occurrence: AU)
  Receive Date: 20121204
  Receipt Date: 20121204
  Transmission Date: 20130627
  Serious: Yes (Hospitalization)
  Sender: FDA-Public Use
  Company Number: AU-009507513-1211AUS012381

PATIENT
  Age: 84 Year
  Sex: Female
  Weight: 80 kg

DRUGS (5)
  1. FOSAMAX [Suspect]
     Dosage: 1 DF, qw
     Dates: end: 20120810
  2. CRESTOR [Concomitant]
  3. LOVAN [Concomitant]
  4. PREDNISOLONE [Concomitant]
  5. LEVOTHYROXINE SODIUM [Concomitant]

REACTIONS (2)
  - Gastric ulcer [Recovered/Resolved]
  - Gastritis erosive [Recovered/Resolved]
